FAERS Safety Report 21917702 (Version 4)
Quarter: 2025Q2

REPORT INFORMATION
  Report Type: Spontaneous
  Country: CH (occurrence: CH)
  Receive Date: 20230127
  Receipt Date: 20250404
  Transmission Date: 20250717
  Serious: Yes (Other)
  Sender: CSL BEHRING
  Company Number: CH-BEH-2021129130

PATIENT
  Sex: Female

DRUGS (8)
  1. PRIVIGEN [Suspect]
     Active Substance: HUMAN IMMUNOGLOBULIN G
     Indication: Small fibre neuropathy
     Route: 065
     Dates: start: 20210127, end: 20210203
  2. PRIVIGEN [Suspect]
     Active Substance: HUMAN IMMUNOGLOBULIN G
     Indication: Postural orthostatic tachycardia syndrome
  3. PRIVIGEN [Suspect]
     Active Substance: HUMAN IMMUNOGLOBULIN G
     Indication: Autonomic nervous system imbalance
  4. PRIVIGEN [Suspect]
     Active Substance: HUMAN IMMUNOGLOBULIN G
     Indication: Off label use
  5. HIZENTRA [Suspect]
     Active Substance: HUMAN IMMUNOGLOBULIN G
     Indication: Postural orthostatic tachycardia syndrome
     Route: 058
  6. HIZENTRA [Suspect]
     Active Substance: HUMAN IMMUNOGLOBULIN G
     Indication: Autonomic nervous system imbalance
  7. HIZENTRA [Suspect]
     Active Substance: HUMAN IMMUNOGLOBULIN G
     Indication: Off label use
  8. KINERET [Concomitant]
     Active Substance: ANAKINRA
     Indication: Body temperature increased
     Dosage: 100 MILLIGRAM, QD
     Route: 058
     Dates: start: 202101

REACTIONS (11)
  - Superinfection [Recovered/Resolved]
  - Superinfection [Recovered/Resolved]
  - Headache [Unknown]
  - Off label use [Unknown]
  - Therapeutic response unexpected [Unknown]
  - Tachycardia [Unknown]
  - Hypotension [Unknown]
  - Poor venous access [Unknown]
  - Drug intolerance [Unknown]
  - Injection site reaction [Unknown]
  - Off label use [Unknown]

NARRATIVE: CASE EVENT DATE: 20210201
